FAERS Safety Report 9454619 (Version 1)
Quarter: 2013Q3

REPORT INFORMATION
  Report Type: Spontaneous
  Country: MK (occurrence: MK)
  Receive Date: 20130812
  Receipt Date: 20130812
  Transmission Date: 20140515
  Serious: Yes (Hospitalization, Other)
  Sender: FDA-Public Use
  Company Number: MK-ROXANE LABORATORIES, INC.-2013-RO-01326RO

PATIENT
  Age: 27 Year
  Sex: Female

DRUGS (1)
  1. PREDNISONE [Suspect]
     Indication: IMMUNE THROMBOCYTOPENIC PURPURA

REACTIONS (2)
  - Immune thrombocytopenic purpura [Unknown]
  - Herpes virus infection [Unknown]
